FAERS Safety Report 12484661 (Version 2)
Quarter: 2016Q3

REPORT INFORMATION
  Report Type: Spontaneous
  Country: BR (occurrence: BR)
  Receive Date: 20160621
  Receipt Date: 20160921
  Transmission Date: 20161109
  Serious: Yes (Other)
  Sender: FDA-Public Use
  Company Number: BR-PFIZER INC-2015105355

PATIENT
  Age: 10 Year
  Sex: Male
  Weight: 43 kg

DRUGS (1)
  1. GENOTROPIN [Suspect]
     Active Substance: SOMATROPIN
     Dosage: 6 IU, DAILY
     Dates: start: 201501

REACTIONS (3)
  - Incorrect product storage [Unknown]
  - Headache [Unknown]
  - Glaucoma [Unknown]

NARRATIVE: CASE EVENT DATE: 20150308
